FAERS Safety Report 20004320 (Version 1)
Quarter: 2021Q4

REPORT INFORMATION
  Report Type: Report from Study
  Country: AU (occurrence: AU)
  Receive Date: 20211028
  Receipt Date: 20211028
  Transmission Date: 20220303
  Serious: Yes (Hospitalization)
  Sender: FDA-Public Use
  Company Number: AU-ROCHE-2905036

PATIENT
  Age: 39 Year
  Sex: Female
  Weight: 72.2 kg

DRUGS (9)
  1. ATEZOLIZUMAB [Suspect]
     Active Substance: ATEZOLIZUMAB
     Indication: Triple negative breast cancer
     Dosage: DATE OF LAST DOSE GIVEN BEFORE SAE 16/AUG/2021
     Route: 041
     Dates: start: 20210816, end: 20210816
  2. BEVACIZUMAB [Suspect]
     Active Substance: BEVACIZUMAB
     Indication: Triple negative breast cancer
     Dosage: DATE OF LAST DOSE GIVEN BEFORE SAE 16/AUG/2021
     Route: 042
     Dates: start: 20210816
  3. CARBOPLATIN [Suspect]
     Active Substance: CARBOPLATIN
     Indication: Triple negative breast cancer
     Dosage: DATE OF LAST DOSE GIVEN BEFORE SAE 23/AUG/2021
     Route: 042
     Dates: start: 20210816
  4. GEMCITABINE [Suspect]
     Active Substance: GEMCITABINE
     Indication: Triple negative breast cancer
     Route: 042
     Dates: start: 20210816, end: 20210823
  5. VENLAFAXINE [Concomitant]
     Active Substance: VENLAFAXINE HYDROCHLORIDE
     Indication: Hot flush
     Route: 048
     Dates: start: 202101
  6. IRON [Concomitant]
     Active Substance: IRON
     Route: 048
     Dates: start: 2020
  7. DEGAS [Concomitant]
     Indication: Abdominal distension
     Route: 048
     Dates: start: 20210804
  8. MAGNESIUM [Concomitant]
     Active Substance: MAGNESIUM
     Route: 048
     Dates: start: 2019
  9. MOMETASONE [Concomitant]
     Active Substance: MOMETASONE
     Indication: Rash maculo-papular
     Route: 061
     Dates: start: 20210830

REACTIONS (2)
  - Febrile neutropenia [Recovered/Resolved]
  - Platelet count decreased [Recovered/Resolved]

NARRATIVE: CASE EVENT DATE: 20210903
